FAERS Safety Report 16107906 (Version 1)
Quarter: 2019Q1

REPORT INFORMATION
  Report Type: Other
  Country: FR (occurrence: FR)
  Receive Date: 20190322
  Receipt Date: 20190322
  Transmission Date: 20190418
  Serious: Yes (Hospitalization)
  Sender: FDA-Public Use
  Company Number: FR-GE HEALTHCARE LIFE SCIENCES-2019CSU001616

PATIENT

DRUGS (2)
  1. VISIPAQUE [Suspect]
     Active Substance: IODIXANOL
     Indication: COMPUTERISED TOMOGRAM ABDOMEN
     Dosage: 1 DF (1 MUMOL/24 HR), SINGLE
     Route: 042
     Dates: start: 20190220, end: 20190220
  2. VISIPAQUE [Suspect]
     Active Substance: IODIXANOL
     Indication: PRODUCT USED FOR UNKNOWN INDICATION

REACTIONS (6)
  - Cyanosis [Unknown]
  - Hypotension [Unknown]
  - Pruritus [Unknown]
  - Syncope [Unknown]
  - Lip oedema [Unknown]
  - Erythema [Unknown]

NARRATIVE: CASE EVENT DATE: 20190220
